FAERS Safety Report 6839628-8 (Version None)
Quarter: 2010Q3

REPORT INFORMATION
  Report Type: 
  Country: None (occurrence: None)
  Receive Date: 20100714
  Receipt Date: 20100707
  Transmission Date: 20110219
  Serious: Yes (Other)
  Sender: FDA-Public Use
  Company Number: US-BAYER-201017742BCC

PATIENT
  Sex: Male

DRUGS (1)
  1. RID LICE KILLING SHAMPOO + CONDITIONER [Suspect]
     Indication: PRODUCT USED FOR UNKNOWN INDICATION
     Route: 061
     Dates: start: 20100706

REACTIONS (2)
  - CORNEAL ABRASION [None]
  - OCULAR HYPERAEMIA [None]
